FAERS Safety Report 24251929 (Version 2)
Quarter: 2024Q3

REPORT INFORMATION
  Report Type: Report from Study
  Country: TR (occurrence: TR)
  Receive Date: 20240827
  Receipt Date: 20240904
  Transmission Date: 20241016
  Serious: Yes (Congenital Anomaly, Other)
  Sender: ALEXION PHARMACEUTICALS
  Company Number: TR-ALXN-202401GLO001762TR

PATIENT
  Age: 30 Year
  Sex: Female
  Weight: 60 kg

DRUGS (1)
  1. SOLIRIS [Suspect]
     Active Substance: ECULIZUMAB
     Indication: Atypical haemolytic uraemic syndrome
     Dosage: 1200 MILLIGRAM
     Route: 065

REACTIONS (2)
  - Abortion spontaneous [Recovered/Resolved]
  - Exposure during pregnancy [Unknown]

NARRATIVE: CASE EVENT DATE: 20230528
